FAERS Safety Report 13212807 (Version 1)
Quarter: 2017Q1

REPORT INFORMATION
  Report Type: Spontaneous
  Country: US (occurrence: US)
  Receive Date: 20170210
  Receipt Date: 20170210
  Transmission Date: 20170428
  Serious: No
  Sender: FDA-Public Use
  Company Number: US-RISING PHARMACEUTICALS, INC.-2016RIS00168

PATIENT
  Age: 65 Year
  Sex: Female
  Weight: 96.15 kg

DRUGS (9)
  1. CIPROFLOXACIN. [Suspect]
     Active Substance: CIPROFLOXACIN
     Indication: ANTIBIOTIC PROPHYLAXIS
     Dosage: 1 GTT, 4X/DAY
     Dates: start: 20161016
  2. L-THYROXINE [Concomitant]
     Active Substance: LEVOTHYROXINE
  3. TRAMADOL. [Concomitant]
     Active Substance: TRAMADOL
  4. LORTAB [Concomitant]
     Active Substance: ACETAMINOPHEN\HYDROCODONE BITARTRATE
  5. PANTOPRAZOLE [Concomitant]
     Active Substance: PANTOPRAZOLE SODIUM
  6. XANAX [Concomitant]
     Active Substance: ALPRAZOLAM
  7. LISINOPRIL. [Concomitant]
     Active Substance: LISINOPRIL
  8. KETOROLAC TROMETHAMINE. [Concomitant]
     Active Substance: KETOROLAC TROMETHAMINE
     Dosage: 1 DOSAGE UNITS, 4X/DAY
     Dates: start: 20160916
  9. SOMA [Concomitant]
     Active Substance: CARISOPRODOL

REACTIONS (2)
  - Eye irritation [Recovered/Resolved]
  - Eye pain [Recovered/Resolved]

NARRATIVE: CASE EVENT DATE: 20161016
